FAERS Safety Report 6818343-0 (Version None)
Quarter: 2010Q3

REPORT INFORMATION
  Report Type: 
  Country: None (occurrence: None)
  Receive Date: 20100706
  Receipt Date: 20080117
  Transmission Date: 20110219
  Serious: No
  Sender: FDA-Public Use
  Company Number: US-PFIZER INC-2008005676

PATIENT
  Sex: Female
  Weight: 55.6 kg

DRUGS (1)
  1. ZITHROMAX [Suspect]
     Indication: LOWER RESPIRATORY TRACT INFECTION
     Dates: start: 20080110, end: 20080114

REACTIONS (2)
  - ABDOMINAL DISCOMFORT [None]
  - MYALGIA [None]
